FAERS Safety Report 14683086 (Version 1)
Quarter: 2018Q1

REPORT INFORMATION
  Report Type: Spontaneous
  Country: US (occurrence: US)
  Receive Date: 20180327
  Receipt Date: 20180327
  Transmission Date: 20180509
  Serious: Yes (Hospitalization, Other)
  Sender: FDA-Public Use
  Company Number: US-CIPLA LTD.-2018US12616

PATIENT

DRUGS (4)
  1. IRINOTECAN [Concomitant]
     Active Substance: IRINOTECAN
     Indication: PANCREATIC CARCINOMA
     Dosage: UNK, 3 CYCLES
  2. LEUCOVORIN                         /00566701/ [Concomitant]
     Active Substance: LEUCOVORIN
     Indication: PANCREATIC CARCINOMA
     Dosage: UNK, 3 CYCLES
  3. FLUOROURACIL. [Concomitant]
     Active Substance: FLUOROURACIL
     Indication: PANCREATIC CARCINOMA
     Dosage: UNK, 3 CYCLES
  4. OXALIPLATIN. [Suspect]
     Active Substance: OXALIPLATIN
     Indication: PANCREATIC CARCINOMA
     Dosage: 3 CYCLE

REACTIONS (3)
  - Agitation [Recovered/Resolved]
  - Neuromyotonia [Recovered/Resolved]
  - Fall [Recovered/Resolved]
